FAERS Safety Report 8455122-5 (Version None)
Quarter: 2012Q2

REPORT INFORMATION
  Report Type: 
  Country: None (occurrence: None)
  Receive Date: 20120614
  Receipt Date: 20120614
  Transmission Date: 20120825
  Serious: Yes (Other)
  Sender: FDA-Public Use
  Company Number: None

PATIENT
  Age: 6 Year
  Sex: Male
  Weight: 20.4119 kg

DRUGS (1)
  1. SINGULAIR [Suspect]
     Dates: start: 20120415, end: 20120418

REACTIONS (4)
  - DEPRESSED MOOD [None]
  - AGGRESSION [None]
  - HALLUCINATION [None]
  - FEELING ABNORMAL [None]
